FAERS Safety Report 14632373 (Version 1)
Quarter: 2018Q1

REPORT INFORMATION
  Report Type: Spontaneous
  Country: JP (occurrence: JP)
  Receive Date: 20180313
  Receipt Date: 20180313
  Transmission Date: 20180509
  Serious: Yes (Other)
  Sender: FDA-Public Use
  Company Number: JP-HQ SPECIALTY-JP-2018INT000032

PATIENT
  Age: 71 Year
  Sex: Male

DRUGS (1)
  1. CISPLATIN. [Suspect]
     Active Substance: CISPLATIN
     Indication: LIP AND/OR ORAL CAVITY CANCER RECURRENT
     Dosage: 160 MG/M2 (240 MG/BODY) TOTAL
     Route: 048
     Dates: start: 201503, end: 201505

REACTIONS (1)
  - Myelodysplastic syndrome [Unknown]
